FAERS Safety Report 7487010-5 (Version None)
Quarter: 2011Q2

REPORT INFORMATION
  Report Type: 
  Country: None (occurrence: None)
  Receive Date: 20110518
  Receipt Date: 20110512
  Transmission Date: 20111010
  Serious: Yes (Hospitalization, Other)
  Sender: FDA-Public Use
  Company Number: FI-BRISTOL-MYERS SQUIBB COMPANY-15672975

PATIENT
  Age: 15 Year
  Sex: Male

DRUGS (3)
  1. IBUPROFEN [Concomitant]
     Indication: PYREXIA
  2. IBUPROFEN [Concomitant]
     Indication: INFLUENZA
  3. ABILIFY [Suspect]
     Dosage: 2.5MG FROM MID FEB2011 THEN 5MG/WEEK AND THEN INCREASED TO 20MG/DAILY ON 14MAR11(FOR 3WEEKS)
     Route: 048
     Dates: start: 20110201

REACTIONS (4)
  - NEUROLEPTIC MALIGNANT SYNDROME [None]
  - POLLAKIURIA [None]
  - LOSS OF CONSCIOUSNESS [None]
  - URINARY HESITATION [None]
